FAERS Safety Report 5610229-2 (Version None)
Quarter: 2008Q1

REPORT INFORMATION
  Report Type: 
  Country: None (occurrence: None)
  Receive Date: 20080131
  Receipt Date: 20080125
  Transmission Date: 20080703
  Serious: Yes (Other)
  Sender: FDA-Public Use
  Company Number: US-PFIZER INC-2008007981

PATIENT
  Sex: Female
  Weight: 54.9 kg

DRUGS (4)
  1. DETROL LA [Suspect]
     Indication: URINARY TRACT INFECTION
     Dates: start: 20080101, end: 20080101
  2. DRUG, UNSPECIFIED [Concomitant]
  3. LEXAPRO [Concomitant]
  4. TYLENOL [Concomitant]

REACTIONS (2)
  - CONSTIPATION [None]
  - GASTRIC DISORDER [None]
